FAERS Safety Report 6318297-X (Version None)
Quarter: 2009Q3

REPORT INFORMATION
  Report Type: 
  Country: None (occurrence: None)
  Receive Date: 20090821
  Receipt Date: 20090812
  Transmission Date: 20100115
  Serious: Yes (Hospitalization)
  Sender: FDA-Public Use
  Company Number: US-TYCO HEALTHCARE/MALLINCKRODT-T200901357

PATIENT
  Sex: Female
  Weight: 86.168 kg

DRUGS (12)
  1. METHADONE [Suspect]
     Indication: PAIN
     Dosage: 40 MG, QID
     Route: 048
     Dates: start: 20090407, end: 20090410
  2. METHADONE [Suspect]
     Dosage: 40 MG, QID
     Route: 048
     Dates: start: 20090501, end: 20090501
  3. METHADONE [Suspect]
     Dosage: 10 MG, BID
     Route: 048
     Dates: start: 20090530, end: 20090101
  4. LYRICA [Concomitant]
     Indication: NEUROPATHY PERIPHERAL
     Dosage: 100 MG, TID
     Route: 048
  5. LYRICA [Concomitant]
     Dosage: UNK
     Route: 048
  6. OXYCONTIN [Concomitant]
     Indication: PAIN
     Dosage: 160 MG, BID
     Route: 048
     Dates: start: 20090410, end: 20090501
  7. OXYCONTIN [Concomitant]
     Dosage: 240 MG, BID
     Route: 048
     Dates: start: 20090619, end: 20090801
  8. OPANA ER [Concomitant]
     Indication: PAIN
     Dosage: 40 MG, QID
     Route: 048
     Dates: start: 20090101
  9. SOMA [Concomitant]
     Indication: PAIN
     Dosage: 350 MG, QD (HS)
     Route: 048
  10. RANITIDINE [Concomitant]
     Indication: GASTROOESOPHAGEAL REFLUX DISEASE
     Dosage: 300 MG, QD
     Route: 048
  11. DETROL                             /01350201/ [Concomitant]
     Indication: POLLAKIURIA
     Dosage: UNK
     Route: 048
  12. XANAX [Concomitant]
     Indication: ANXIETY
     Dosage: 1 MG, TID
     Route: 048

REACTIONS (5)
  - FALL [None]
  - INSOMNIA [None]
  - MOOD ALTERED [None]
  - OEDEMA PERIPHERAL [None]
  - SKIN DISCOLOURATION [None]
